FAERS Safety Report 6409766-2 (Version None)
Quarter: 2009Q4

REPORT INFORMATION
  Report Type: 
  Country: None (occurrence: None)
  Receive Date: 20091021
  Receipt Date: 20091021
  Transmission Date: 20100525
  Serious: Yes (Hospitalization)
  Sender: FDA-Public Use
  Company Number: None

PATIENT
  Sex: Female
  Weight: 83.6 kg

DRUGS (4)
  1. FLUOROURACIL [Suspect]
     Dosage: 4250 MG
     Dates: end: 20090928
  2. BEVACIZUMAB (RHUMAB VEGF) [Suspect]
     Dosage: 450 MG
     Dates: end: 20090928
  3. CAMPTOSAR [Suspect]
     Dosage: 285 MG
     Dates: end: 20090928
  4. LEUCOVORIN CALCIUM [Suspect]
     Dosage: 800 MG
     Dates: end: 20090929

REACTIONS (6)
  - ADHESION [None]
  - DIARRHOEA [None]
  - ILEUS [None]
  - SEPSIS [None]
  - SMALL INTESTINAL OBSTRUCTION [None]
  - URINARY TRACT INFECTION [None]
